FAERS Safety Report 19813597 (Version 14)
Quarter: 2025Q3

REPORT INFORMATION
  Report Type: Report from Study
  Country: CA (occurrence: CA)
  Receive Date: 20210909
  Receipt Date: 20250723
  Transmission Date: 20251020
  Serious: Yes (Other)
  Sender: TAKEDA
  Company Number: CA-TAKEDA-2021TUS043425

PATIENT
  Age: 61 Year
  Sex: Male

DRUGS (13)
  1. VEDOLIZUMAB [Suspect]
     Active Substance: VEDOLIZUMAB
     Indication: Crohn^s disease
  2. VEDOLIZUMAB [Suspect]
     Active Substance: VEDOLIZUMAB
  3. VEDOLIZUMAB [Suspect]
     Active Substance: VEDOLIZUMAB
     Indication: Crohn^s disease
     Dosage: 108 MILLIGRAM, Q2WEEKS
     Dates: start: 20220214
  4. VEDOLIZUMAB [Suspect]
     Active Substance: VEDOLIZUMAB
     Dosage: 108 MILLIGRAM, Q2WEEKS
  5. DEXILANT [Suspect]
     Active Substance: DEXLANSOPRAZOLE
     Indication: Product used for unknown indication
  6. PREDNISONE [Concomitant]
     Active Substance: PREDNISONE
  7. PREGABALIN [Concomitant]
     Active Substance: PREGABALIN
  8. EFFEXOR [Concomitant]
     Active Substance: VENLAFAXINE HYDROCHLORIDE
  9. AMITRIPTYLINE [Concomitant]
     Active Substance: AMITRIPTYLINE
  10. ATARAX [Concomitant]
     Active Substance: HYDROXYZINE HYDROCHLORIDE
  11. ELIQUIS [Concomitant]
     Active Substance: APIXABAN
     Indication: Cerebral thrombosis
     Dosage: 2.5 MILLIGRAM, BID
  12. ELIQUIS [Concomitant]
     Active Substance: APIXABAN
     Indication: Pulmonary embolism
  13. Statex [Concomitant]

REACTIONS (23)
  - Diverticulitis [Unknown]
  - Aortic aneurysm [Unknown]
  - Abdominal hernia [Unknown]
  - Injection site pain [Unknown]
  - Neck pain [Unknown]
  - Limb injury [Unknown]
  - Road traffic accident [Unknown]
  - Gastrointestinal inflammation [Unknown]
  - Abnormal faeces [Unknown]
  - Gastrooesophageal reflux disease [Unknown]
  - Sleep disorder [Unknown]
  - Pain [Unknown]
  - Diarrhoea [Unknown]
  - Pancreas divisum [Unknown]
  - Therapeutic product effect decreased [Unknown]
  - Arthropod sting [Unknown]
  - Diastasis recti abdominis [Unknown]
  - Injection site warmth [Unknown]
  - Overweight [Unknown]
  - Abdominal pain [Recovered/Resolved]
  - Decreased appetite [Unknown]
  - Arthralgia [Unknown]
  - Headache [Recovered/Resolved]

NARRATIVE: CASE EVENT DATE: 20230701
